FAERS Safety Report 8688031 (Version 3)
Quarter: 2015Q3

REPORT INFORMATION
  Report Type: Spontaneous
  Country: JP (occurrence: JP)
  Receive Date: 20120727
  Receipt Date: 20150818
  Transmission Date: 20151125
  Serious: Yes (Hospitalization)
  Sender: FDA-Public Use
  Company Number: JP-ROCHE-1090438

PATIENT
  Age: 15 Year
  Sex: Female
  Weight: 36 kg

DRUGS (6)
  1. CLARITHROMYCIN. [Concomitant]
     Active Substance: CLARITHROMYCIN
  2. AZITHROMYCIN [Concomitant]
     Active Substance: AZITHROMYCIN ANHYDROUS
  3. TAMIFLU [Suspect]
     Active Substance: OSELTAMIVIR PHOSPHATE
     Route: 048
     Dates: start: 20090909, end: 20090910
  4. AMBROXOL [Concomitant]
     Active Substance: AMBROXOL
  5. BENPROPERINE [Concomitant]
     Active Substance: BENPROPERINE
  6. TAMIFLU [Suspect]
     Active Substance: OSELTAMIVIR PHOSPHATE
     Indication: INFLUENZA
     Dosage: TOTAL 5 DOSES OF 2 MG/KG (150 MG/DAY, TWICE A DAY)
     Route: 048
     Dates: start: 20090908, end: 20090908

REACTIONS (7)
  - Disorientation [Recovered/Resolved]
  - Memory impairment [Recovered/Resolved]
  - Delusion [Recovered/Resolved]
  - Insomnia [Recovered/Resolved]
  - Hallucination, visual [Recovered/Resolved]
  - Abnormal behaviour [Recovered/Resolved]
  - Delirium [Recovered/Resolved]
